FAERS Safety Report 15837532 (Version 2)
Quarter: 2019Q1

REPORT INFORMATION
  Report Type: Spontaneous
  Country: GB (occurrence: GB)
  Receive Date: 20190117
  Receipt Date: 20190117
  Transmission Date: 20190417
  Serious: Yes (Other)
  Sender: FDA-Public Use
  Company Number: GB-IPSEN BIOPHARMACEUTICALS, INC.-2019-00596

PATIENT
  Age: 63 Year
  Sex: Male

DRUGS (2)
  1. PEGYLATED LIPOSOMAL IRINOTECAN [Suspect]
     Active Substance: IRINOTECAN HYDROCHLORIDE
     Indication: PRODUCT USED FOR UNKNOWN INDICATION
     Dosage: DOSE NOT REPORTED
     Route: 065
     Dates: start: 20180904, end: 20180904
  2. TN UNSPECIFIED [Suspect]
     Active Substance: TROLNITRATE
     Indication: PRODUCT USED FOR UNKNOWN INDICATION
     Dosage: INCREASED TO 63ML/HOUR AT 17:22. THERAPY DURATION: 6 HOURS.
     Route: 065
     Dates: start: 20180904, end: 20180904

REACTIONS (3)
  - Sinus bradycardia [Unknown]
  - Incorrect drug administration rate [Unknown]
  - Chest pain [Unknown]

NARRATIVE: CASE EVENT DATE: 20180904
